FAERS Safety Report 4446119-0 (Version None)
Quarter: 2004Q3

REPORT INFORMATION
  Report Type: 
  Country: None (occurrence: None)
  Receive Date: 20040907
  Receipt Date: 20040830
  Transmission Date: 20050211
  Serious: No
  Sender: FDA-Public Use
  Company Number: 2004UW18241

PATIENT
  Age: 61 Year
  Sex: Female

DRUGS (5)
  1. RHINOCORT [Suspect]
  2. PROCRIT [Suspect]
     Indication: ANAEMIA OF MALIGNANT DISEASE
     Dosage: 4000 IU SQ
     Dates: start: 20040324
  3. VELCADE [Concomitant]
  4. ZANTAC [Concomitant]
  5. ZYRTEC [Concomitant]

REACTIONS (8)
  - APLASIA PURE RED CELL [None]
  - ARTHRALGIA [None]
  - FATIGUE [None]
  - LEUKOPENIA [None]
  - PLATELET COUNT DECREASED [None]
  - STEM CELL TRANSPLANT [None]
  - THERAPEUTIC RESPONSE DECREASED [None]
  - WHITE BLOOD CELL COUNT DECREASED [None]
